FAERS Safety Report 4279006-1 (Version None)
Quarter: 2004Q1

REPORT INFORMATION
  Report Type: 
  Country: None (occurrence: None)
  Receive Date: 20040126
  Receipt Date: 20020528
  Transmission Date: 20041129
  Serious: Yes (Death, Hospitalization)
  Sender: FDA-Public Use
  Company Number: US-BRISTOL-MYERS SQUIBB COMPANY-11880747

PATIENT
  Age: 44 Year
  Sex: Male
  Weight: 113 kg

DRUGS (6)
  1. SERZONE [Suspect]
     Indication: DEPRESSION
     Route: 048
     Dates: start: 19970601, end: 19971101
  2. LITHIUM CARBONATE [Concomitant]
     Dates: start: 19910101
  3. ATIVAN [Concomitant]
     Dates: start: 19910101
  4. AVENTYL HCL [Concomitant]
     Dates: start: 19910101
  5. ZOLOFT [Concomitant]
     Dates: start: 19930101
  6. PHENERGAN HCL [Concomitant]
     Indication: HEPATITIS
     Dosage: SUPPOSITORY

REACTIONS (15)
  - AREFLEXIA [None]
  - ASTHENIA [None]
  - COMPLICATIONS OF TRANSPLANT SURGERY [None]
  - DEATH [None]
  - GASTRITIS [None]
  - HAEMOLYSIS [None]
  - HEPATIC FAILURE [None]
  - HYPOTENSION [None]
  - MENTAL STATUS CHANGES [None]
  - PEPTIC ULCER [None]
  - PNEUMONIA [None]
  - QUADRIPLEGIA [None]
  - RENAL FAILURE [None]
  - SEPSIS [None]
  - UPPER GASTROINTESTINAL HAEMORRHAGE [None]
